FAERS Safety Report 14766514 (Version 1)
Quarter: 2018Q2

REPORT INFORMATION
  Report Type: Spontaneous
  Country: GB (occurrence: GB)
  Receive Date: 20180416
  Receipt Date: 20180416
  Transmission Date: 20180711
  Serious: Yes (Hospitalization)
  Sender: FDA-Public Use
  Company Number: GB-TEVA-2018-GB-881335

PATIENT
  Age: 57 Year
  Sex: Female
  Weight: 86 kg

DRUGS (3)
  1. EPIRUBICIN [Suspect]
     Active Substance: EPIRUBICIN
     Indication: BREAST CANCER
     Dosage: UNKNOWN
     Route: 042
     Dates: start: 20171116, end: 20171116
  2. FLUOROURACIL. [Suspect]
     Active Substance: FLUOROURACIL
     Indication: BREAST CANCER
     Dosage: NOT KNOWN.
     Route: 042
     Dates: start: 20171116, end: 20171116
  3. CYCLOPHOSPHAMIDE. [Suspect]
     Active Substance: CYCLOPHOSPHAMIDE
     Indication: BREAST CANCER
     Dosage: UNKNOWN
     Route: 042
     Dates: start: 20171116, end: 20171116

REACTIONS (4)
  - Neutropenic sepsis [Not Recovered/Not Resolved]
  - Oral pain [Unknown]
  - Mucosal inflammation [Not Recovered/Not Resolved]
  - Herpes simplex [Not Recovered/Not Resolved]

NARRATIVE: CASE EVENT DATE: 20171122
